FAERS Safety Report 21584959 (Version 1)
Quarter: 2022Q4

REPORT INFORMATION
  Report Type: Spontaneous
  Country: AU (occurrence: AU)
  Receive Date: 20221111
  Receipt Date: 20221111
  Transmission Date: 20230112
  Serious: Yes (Other)
  Sender: FDA-Public Use
  Company Number: AU-PFIZER INC-PV202200100433

PATIENT

DRUGS (1)
  1. PRISTIQ EXTENDED-RELEASE [Suspect]
     Active Substance: DESVENLAFAXINE SUCCINATE
     Dosage: 100 MG FOR 8 YEARS

REACTIONS (9)
  - Mental impairment [Unknown]
  - Withdrawal syndrome [Unknown]
  - Pain [Unknown]
  - Illness [Unknown]
  - Speech disorder [Unknown]
  - Gait disturbance [Unknown]
  - Nausea [Unknown]
  - Electric shock sensation [Unknown]
  - Feeling abnormal [Unknown]
